FAERS Safety Report 18502323 (Version 2)
Quarter: 2021Q1

REPORT INFORMATION
  Report Type: Spontaneous
  Country: CA (occurrence: CA)
  Receive Date: 20201113
  Receipt Date: 20210106
  Transmission Date: 20210419
  Serious: Yes (Hospitalization, Other)
  Sender: FDA-Public Use
  Company Number: CA-SAMSUNG BIOEPIS-SB-2020-34171

PATIENT
  Age: 48 Year
  Sex: Female

DRUGS (4)
  1. INFLIXIMAB [Suspect]
     Active Substance: INFLIXIMAB
     Indication: COLITIS ULCERATIVE
     Route: 042
  2. INFLIXIMAB [Suspect]
     Active Substance: INFLIXIMAB
     Indication: PYODERMA GANGRENOSUM
     Route: 042
  3. PREDNISONE. [Concomitant]
     Active Substance: PREDNISONE
     Indication: PRODUCT USED FOR UNKNOWN INDICATION
     Route: 065
  4. PREDNISONE. [Concomitant]
     Active Substance: PREDNISONE
     Dosage: UNKNOWN
     Route: 065

REACTIONS (6)
  - Colitis ulcerative [Not Recovered/Not Resolved]
  - Blood pressure fluctuation [Not Recovered/Not Resolved]
  - Product use in unapproved indication [Unknown]
  - Diverticulitis [Not Recovered/Not Resolved]
  - Drug level decreased [Not Recovered/Not Resolved]
  - Drug specific antibody present [Not Recovered/Not Resolved]
